FAERS Safety Report 6739274-0 (Version None)
Quarter: 2010Q2

REPORT INFORMATION
  Report Type: 
  Country: None (occurrence: None)
  Receive Date: 20100525
  Receipt Date: 20100511
  Transmission Date: 20101027
  Serious: Yes (Other)
  Sender: FDA-Public Use
  Company Number: PHHY2010CA28264

PATIENT
  Sex: Male

DRUGS (9)
  1. CLOZARIL [Suspect]
     Indication: SCHIZOPHRENIA
     Dosage: 200 MG/DAY
     Route: 048
     Dates: start: 20000626, end: 20100504
  2. LYRICA [Concomitant]
     Dosage: 150 MG AM + 300 MG PM
  3. PREVACID [Concomitant]
     Dosage: 30 MG, QD
  4. TYLENOL [Concomitant]
     Dosage: 500 MG, Q3 - 4 HRS
  5. REMERON [Concomitant]
     Dosage: 30 MG, QHS
  6. MOTRIN [Concomitant]
     Dosage: 200 MG, 2 Q 3 - 4 HRS
  7. STELAZINE [Concomitant]
     Dosage: 2 MG, QHS
  8. DOCUSATE [Concomitant]
     Dosage: 100 MG, BID
  9. LACTULOSE [Concomitant]
     Dosage: 15 - 30 ML BID

REACTIONS (2)
  - HEAD AND NECK CANCER [None]
  - SALIVARY GLAND CANCER [None]
